FAERS Safety Report 11802798 (Version 1)
Quarter: 2015Q4

REPORT INFORMATION
  Report Type: Spontaneous
  Country: US (occurrence: US)
  Receive Date: 20151204
  Receipt Date: 20151204
  Transmission Date: 20160305
  Serious: No
  Sender: FDA-Public Use
  Company Number: US-BEH-2015050178

PATIENT
  Age: 29 Year
  Sex: Female

DRUGS (2)
  1. BERINERT [Suspect]
     Active Substance: HUMAN C1-ESTERASE INHIBITOR
     Indication: HEREDITARY ANGIOEDEMA
     Dosage: 500 UNITS; DOSING PERIOD 02-FEB-2015 TO PRESENT;START DATE ALSO REPORTED AS 30-JAN-2015
     Route: 042
  2. BERINERT [Suspect]
     Active Substance: HUMAN C1-ESTERASE INHIBITOR
     Indication: HEREDITARY ANGIOEDEMA
     Dosage: 500 UNITS; DOSING PERIOD 02-FEB-2015 TO PRESENT;START DATE ALSO REPORTED AS 30-JAN-2015
     Route: 042

REACTIONS (1)
  - Exposure during pregnancy [Unknown]
